FAERS Safety Report 15505216 (Version 1)
Quarter: 2018Q4

REPORT INFORMATION
  Report Type: Report from Study
  Country: None (occurrence: BR)
  Receive Date: 20181016
  Receipt Date: 20181016
  Transmission Date: 20190205
  Serious: Yes (Hospitalization)
  Sender: FDA-Public Use
  Company Number: BR-ABBVIE-18K-020-2517265-00

PATIENT
  Sex: Male

DRUGS (3)
  1. OMEPRAZOLE. [Concomitant]
     Active Substance: OMEPRAZOLE
     Indication: PRODUCT USED FOR UNKNOWN INDICATION
  2. PREDNISONE. [Concomitant]
     Active Substance: PREDNISONE
     Indication: PRODUCT USED FOR UNKNOWN INDICATION
  3. HUMIRA [Suspect]
     Active Substance: ADALIMUMAB
     Indication: PSORIATIC ARTHROPATHY
     Route: 058
     Dates: start: 20180422, end: 20180906

REACTIONS (9)
  - Pyrexia [Unknown]
  - Asthenia [Unknown]
  - Malaise [Unknown]
  - Stomatitis [Unknown]
  - Immunodeficiency [Unknown]
  - Cold sweat [Unknown]
  - Axillary mass [Unknown]
  - Mass [Unknown]
  - Infection [Unknown]

NARRATIVE: CASE EVENT DATE: 2018
